FAERS Safety Report 12269605 (Version 1)
Quarter: 2016Q2

REPORT INFORMATION
  Report Type: Spontaneous
  Country: US (occurrence: US)
  Receive Date: 20160414
  Receipt Date: 20160414
  Transmission Date: 20160815
  Serious: No
  Sender: FDA-Public Use
  Company Number: US-BAYER-2016-069617

PATIENT
  Age: 73 Year
  Sex: Female

DRUGS (1)
  1. LOTRIMIN ULTRA ANTIFUNGAL [Suspect]
     Active Substance: BUTENAFINE HYDROCHLORIDE
     Indication: HAIR GROWTH ABNORMAL
     Dosage: UNK
     Route: 061
     Dates: start: 201512, end: 201602

REACTIONS (2)
  - Product use issue [None]
  - Therapeutic response unexpected [None]

NARRATIVE: CASE EVENT DATE: 201512
